FAERS Safety Report 9712417 (Version 1)
Quarter: 2013Q4

REPORT INFORMATION
  Report Type: Spontaneous
  Country: US (occurrence: None)
  Receive Date: 20131125
  Receipt Date: 20131125
  Transmission Date: 20140711
  Serious: No
  Sender: FDA-Public Use
  Company Number: None

PATIENT
  Age: 52 Year
  Sex: Female
  Weight: 66.23 kg

DRUGS (2)
  1. AMPHETAS/COMBO 30 MG GENERIC FOR ADDERALL BARR [Suspect]
     Indication: ATTENTION DEFICIT/HYPERACTIVITY DISORDER
     Route: 048
     Dates: start: 20131110, end: 20131115
  2. IBUPROFEN [Concomitant]

REACTIONS (5)
  - Malaise [None]
  - Dizziness [None]
  - Nausea [None]
  - Headache [None]
  - Product quality issue [None]
